FAERS Safety Report 10100973 (Version 1)
Quarter: 2014Q2

REPORT INFORMATION
  Report Type: Spontaneous
  Country: GB (occurrence: GB)
  Receive Date: 20140424
  Receipt Date: 20140424
  Transmission Date: 20141212
  Serious: Yes (Other)
  Sender: FDA-Public Use
  Company Number: GB-IPSEN BIOPHARMACEUTICALS, INC.-2014-1933

PATIENT
  Age: 83 Year
  Sex: Female
  Weight: 48 kg

DRUGS (4)
  1. LANREOTIDE 120 MG [Suspect]
     Indication: PANCREATIC CARCINOMA
     Route: 065
     Dates: start: 20140317
  2. ASPIRIN [Concomitant]
     Indication: ANGINA PECTORIS
     Dosage: NOT REPORTED
     Route: 065
  3. FERROUS SULFATE [Concomitant]
     Indication: PRODUCT USED FOR UNKNOWN INDICATION
     Dosage: NOT REPORTED
     Route: 065
  4. UNSPECIFIED ANGINA MEDICATION [Concomitant]
     Indication: ANGINA PECTORIS
     Dosage: NOT REPORTED
     Route: 065

REACTIONS (2)
  - Joint swelling [Not Recovered/Not Resolved]
  - Blood pressure systolic increased [Not Recovered/Not Resolved]
